FAERS Safety Report 23254616 (Version 2)
Quarter: 2024Q1

REPORT INFORMATION
  Report Type: Spontaneous
  Country: US (occurrence: US)
  Receive Date: 20231203
  Receipt Date: 20240328
  Transmission Date: 20240410
  Serious: No
  Sender: FDA-Public Use
  Company Number: US-SA-SAC20231123000697

PATIENT
  Age: 55 Year
  Sex: Female

DRUGS (2)
  1. DUPIXENT [Suspect]
     Active Substance: DUPILUMAB
     Indication: Neurodermatitis
     Dosage: 600 MG 1X
     Route: 058
     Dates: start: 202310, end: 202310
  2. DUPIXENT [Suspect]
     Active Substance: DUPILUMAB
     Dosage: 300MG QOW
     Route: 058
     Dates: start: 2023, end: 202401

REACTIONS (4)
  - Neurodermatitis [Recovering/Resolving]
  - Swelling [Recovering/Resolving]
  - Pruritus [Recovering/Resolving]
  - Rash [Unknown]

NARRATIVE: CASE EVENT DATE: 20231101
